FAERS Safety Report 9416262 (Version 2)
Quarter: 2013Q3

REPORT INFORMATION
  Report Type: Spontaneous
  Country: IT (occurrence: None)
  Receive Date: 20130719
  Receipt Date: 20130808
  Transmission Date: 20140515
  Serious: Yes (Other)
  Sender: FDA-Public Use
  Company Number: 1799906

PATIENT
  Age: 56 Year
  Sex: Female

DRUGS (5)
  1. PACLITAXEL [Suspect]
     Indication: METASTATIC GASTRIC CANCER
  2. RANIDIL [Concomitant]
  3. SOLDESAM [Concomitant]
  4. TRIMETON [Concomitant]
  5. PLASIL [Concomitant]

REACTIONS (3)
  - Asphyxia [None]
  - Erythema [None]
  - Hypersensitivity [None]
